FAERS Safety Report 4987516-4 (Version None)
Quarter: 2006Q2

REPORT INFORMATION
  Report Type: 
  Country: None (occurrence: None)
  Receive Date: 20060501
  Receipt Date: 20051207
  Transmission Date: 20061013
  Serious: Yes (Hospitalization, Other)
  Sender: FDA-Public Use
  Company Number: US-MERCK-0512USA01419

PATIENT
  Age: 51 Year
  Sex: Female
  Weight: 114 kg

DRUGS (19)
  1. VIOXX [Suspect]
     Indication: ARTHRITIS
     Route: 048
     Dates: start: 20000101, end: 20040101
  2. VIOXX [Suspect]
     Route: 048
     Dates: start: 20000101, end: 20040101
  3. POTASSIUM (UNSPECIFIED) [Concomitant]
     Route: 048
     Dates: start: 20011220
  4. LIPITOR [Concomitant]
     Route: 048
     Dates: start: 20011220
  5. NORVASC [Concomitant]
     Route: 048
     Dates: start: 20011220
  6. KLONOPIN [Concomitant]
     Route: 048
     Dates: start: 20011220
  7. DARVOCET [Concomitant]
     Route: 048
     Dates: start: 20011220
  8. METROGEL [Concomitant]
     Route: 065
     Dates: start: 20011220
  9. PREMARIN [Concomitant]
     Route: 048
  10. ASPIRIN [Concomitant]
     Route: 048
     Dates: start: 20011220
  11. ZESTRIL [Concomitant]
     Route: 048
     Dates: start: 20011220
  12. HYDROCHLOROTHIAZIDE [Concomitant]
     Route: 048
     Dates: start: 20011220
  13. IMIPRAMINE PAMOATE [Concomitant]
     Route: 048
     Dates: start: 20011220, end: 20040204
  14. RANITIDINE [Concomitant]
     Route: 048
  15. REMERON [Concomitant]
     Route: 048
  16. COPAXONE [Concomitant]
     Route: 058
     Dates: start: 20030201, end: 20030324
  17. CYTOTEC [Concomitant]
     Route: 048
  18. SEREVENT [Concomitant]
     Route: 065
  19. ALBUTEROL [Concomitant]
     Route: 065

REACTIONS (45)
  - ADRENAL MASS [None]
  - ANGINA PECTORIS [None]
  - ANGINA UNSTABLE [None]
  - ANXIETY [None]
  - ARRHYTHMIA [None]
  - ASTHENIA [None]
  - BALANCE DISORDER [None]
  - CEREBRAL ATROPHY [None]
  - CEREBROVASCULAR ACCIDENT [None]
  - CHEST DISCOMFORT [None]
  - CHEST PAIN [None]
  - CHOLECYSTECTOMY [None]
  - CHOLECYSTITIS ACUTE [None]
  - CHRONIC OBSTRUCTIVE PULMONARY DISEASE [None]
  - CHRONIC SINUSITIS [None]
  - COUGH [None]
  - DEPRESSION [None]
  - DIABETES MELLITUS NON-INSULIN-DEPENDENT [None]
  - DIVERTICULUM INTESTINAL [None]
  - DIZZINESS [None]
  - DRY MOUTH [None]
  - DYSPNOEA [None]
  - FALL [None]
  - HEPATOMEGALY [None]
  - HYPOAESTHESIA [None]
  - HYPOTENSION [None]
  - MULTIPLE SCLEROSIS [None]
  - NEUROPATHY PERIPHERAL [None]
  - OEDEMA PERIPHERAL [None]
  - PAIN [None]
  - PAIN IN EXTREMITY [None]
  - PALPITATIONS [None]
  - PRURITUS [None]
  - PYREXIA [None]
  - RASH [None]
  - RESTLESS LEGS SYNDROME [None]
  - SEPSIS [None]
  - SINUSITIS [None]
  - SLEEP APNOEA SYNDROME [None]
  - SPEECH DISORDER [None]
  - SPLENOMEGALY [None]
  - UMBILICAL HERNIA [None]
  - URINARY TRACT INFECTION [None]
  - VERTIGO [None]
  - VISION BLURRED [None]
